FAERS Safety Report 20578402 (Version 3)
Quarter: 2022Q1

REPORT INFORMATION
  Report Type: Spontaneous
  Country: AT (occurrence: AT)
  Receive Date: 20220310
  Receipt Date: 20220324
  Transmission Date: 20220423
  Serious: Yes (Other)
  Sender: FDA-Public Use
  Company Number: AT-ORGANON-O2203AUT000875

PATIENT
  Sex: Female

DRUGS (1)
  1. FOSAMAX [Suspect]
     Active Substance: ALENDRONATE SODIUM
     Indication: Osteoporosis
     Dosage: ONCE A WEEK (QW)
     Route: 048

REACTIONS (3)
  - Foreign body in throat [Unknown]
  - Dysphagia [Unknown]
  - Product physical issue [Unknown]
